FAERS Safety Report 7037064-5 (Version None)
Quarter: 2010Q4

REPORT INFORMATION
  Report Type: 
  Country: None (occurrence: None)
  Receive Date: 20101011
  Receipt Date: 20101001
  Transmission Date: 20110411
  Serious: Yes (Other)
  Sender: FDA-Public Use
  Company Number: BR-ASTRAZENECA-2008UW08751

PATIENT
  Age: 44 Year
  Sex: Female
  Weight: 90 kg

DRUGS (2)
  1. SEROQUEL [Suspect]
     Indication: BIPOLAR DISORDER
     Route: 048
     Dates: start: 20070301
  2. SEROQUEL [Suspect]
     Indication: THINKING ABNORMAL
     Route: 048
     Dates: start: 20070301

REACTIONS (10)
  - BLOOD PRESSURE INCREASED [None]
  - COUGH [None]
  - HEADACHE [None]
  - HYPERTENSION [None]
  - LIGAMENT RUPTURE [None]
  - MYOCARDIAL ISCHAEMIA [None]
  - TACHYCARDIA [None]
  - TENDON CALCIFICATION [None]
  - UTERINE POLYP [None]
  - WEIGHT LOSS POOR [None]
